FAERS Safety Report 9575150 (Version 2)
Quarter: 2013Q4

REPORT INFORMATION
  Report Type: Spontaneous
  Country: JP (occurrence: JP)
  Receive Date: 20131001
  Receipt Date: 20131001
  Transmission Date: 20140711
  Serious: Yes (Other)
  Sender: FDA-Public Use
  Company Number: PHHY2013JP020566

PATIENT
  Age: 70 Year
  Sex: Male

DRUGS (3)
  1. CEFEPIME HYDROCHLORIDE SANDOZ [Suspect]
     Indication: PNEUMONIA
     Dosage: 1 G, QD
     Route: 042
     Dates: start: 20130212, end: 20130227
  2. LASIX [Concomitant]
  3. INSULIN [Concomitant]

REACTIONS (6)
  - Delirium [Unknown]
  - Dyskinesia [Unknown]
  - Communication disorder [Recovering/Resolving]
  - Decreased eye contact [Recovering/Resolving]
  - Hallucination [Unknown]
  - Altered state of consciousness [Recovered/Resolved]
